FAERS Safety Report 21749683 (Version 1)
Quarter: 2022Q4

REPORT INFORMATION
  Report Type: Report from Study
  Country: US (occurrence: US)
  Receive Date: 20221219
  Receipt Date: 20221219
  Transmission Date: 20230113
  Serious: Yes (Hospitalization)
  Sender: FDA-Public Use
  Company Number: US-ALLERGAN-2241423US

PATIENT
  Sex: Female

DRUGS (2)
  1. ATOGEPANT [Suspect]
     Active Substance: ATOGEPANT
     Indication: Product used for unknown indication
     Dosage: 10 MG, QD
     Route: 048
  2. ATOGEPANT [Suspect]
     Active Substance: ATOGEPANT
     Dosage: 60 MG, QD
     Route: 048

REACTIONS (1)
  - Gastritis [Unknown]
